FAERS Safety Report 10882842 (Version 1)
Quarter: 2015Q1

REPORT INFORMATION
  Report Type: Spontaneous
  Country: US (occurrence: US)
  Receive Date: 20150303
  Receipt Date: 20150303
  Transmission Date: 20150721
  Serious: No
  Sender: FDA-Public Use
  Company Number: US-PFIZER INC-2015073579

PATIENT
  Age: 67 Year
  Sex: Male
  Weight: 91 kg

DRUGS (1)
  1. LYRICA [Suspect]
     Active Substance: PREGABALIN
     Indication: NEUROPATHY PERIPHERAL
     Dosage: 200 MG, 2X/DAY
     Route: 048
     Dates: start: 2010, end: 201502

REACTIONS (8)
  - Muscle atrophy [Not Recovered/Not Resolved]
  - Myalgia [Unknown]
  - Dermatitis [Not Recovered/Not Resolved]
  - Muscular weakness [Unknown]
  - Rash papular [Unknown]
  - Urticaria [Recovering/Resolving]
  - Blister [Unknown]
  - Skin texture abnormal [Not Recovered/Not Resolved]

NARRATIVE: CASE EVENT DATE: 2013
